FAERS Safety Report 9139242 (Version 2)
Quarter: 2013Q1

REPORT INFORMATION
  Report Type: Spontaneous
  Country: US (occurrence: US)
  Receive Date: 20130305
  Receipt Date: 20130319
  Transmission Date: 20140127
  Serious: No
  Sender: FDA-Public Use
  Company Number: PHEH2013US004952

PATIENT
  Age: 61 Year
  Sex: Male
  Weight: 114.29 kg

DRUGS (15)
  1. TASIGNA [Suspect]
     Dosage: 300 MG, BID
     Route: 048
  2. IMODIUM A-D [Concomitant]
     Dosage: 2 MG
  3. COMBIGAN [Concomitant]
     Dosage: 0.2 %
  4. FUROSEMIDE [Concomitant]
     Dosage: 20 MG
  5. ZOLPIDEM [Concomitant]
     Dosage: 5 MG
  6. LABETALOL [Concomitant]
     Dosage: 100 MG
  7. BENICAR HCT [Concomitant]
     Dosage: 20 MG
  8. MINOXIDIL [Concomitant]
     Dosage: 2.5 MG
  9. SERTRALINE [Concomitant]
     Dosage: 25 MG
  10. TEKTURNA [Concomitant]
     Dosage: 150 MG
  11. ALLOPURINOL [Concomitant]
     Dosage: 100 MG
  12. TRICOR [Concomitant]
     Dosage: 48 MG
  13. LUMIGAN [Concomitant]
     Dosage: 0.03 %
  14. MULTI-VIT [Concomitant]
  15. CHOLESTA [Concomitant]

REACTIONS (4)
  - Nausea [Unknown]
  - Pruritus [Unknown]
  - Fatigue [Unknown]
  - Dyspnoea [Unknown]
